FAERS Safety Report 9365352 (Version 1)
Quarter: 2013Q2

REPORT INFORMATION
  Report Type: Spontaneous
  Country: AT (occurrence: AT)
  Receive Date: 20130625
  Receipt Date: 20130625
  Transmission Date: 20140414
  Serious: Yes (Life-Threatening, Hospitalization)
  Sender: FDA-Public Use
  Company Number: AT-ABBOTT-13X-009-1109331-00

PATIENT
  Age: 42 Year
  Sex: Female

DRUGS (13)
  1. DEPAKINE [Suspect]
     Indication: BIPOLAR DISORDER
     Dosage: 2600 MILLIGRAM(S) ;DAILY
     Route: 048
     Dates: start: 20021205
  2. DEPAKINE [Suspect]
     Indication: MANIA
     Route: 048
     Dates: start: 20021208
  3. DEPAKINE [Suspect]
     Indication: PSYCHOTIC DISORDER
     Route: 048
     Dates: start: 20021107, end: 20021108
  4. DEPAKINE [Suspect]
     Route: 048
     Dates: start: 20021109, end: 20021204
  5. ZYPREXA [Suspect]
     Indication: PRODUCT USED FOR UNKNOWN INDICATION
     Dosage: 30 MILLIGRAM(S) ;DAILY
     Route: 048
     Dates: start: 20021123, end: 20021205
  6. QUILONUM [Suspect]
     Indication: PRODUCT USED FOR UNKNOWN INDICATION
     Dosage: 900 MILLIGRAM(S);DAILY
     Route: 048
     Dates: start: 20021123, end: 20021205
  7. RIVOTRIL [Suspect]
     Indication: PRODUCT USED FOR UNKNOWN INDICATION
     Dosage: 10 MILLIGRAM(S) ;DAILY
     Route: 048
     Dates: start: 20021204, end: 20021205
  8. RIVOTRIL [Suspect]
     Route: 048
     Dates: start: 20021122, end: 20021125
  9. NUBAIN [Suspect]
     Indication: SEDATION
     Dosage: 20 MILLIGRAM(S); UNKNOWN
     Route: 058
     Dates: start: 20021204
  10. SCOPOLAMINE [Suspect]
     Indication: SEDATION
     Dosage: 0.5 MILLILITRE(S) ;UNKNOWN
     Route: 058
     Dates: start: 20021204
  11. AUGMENTIN [Concomitant]
     Indication: PRODUCT USED FOR UNKNOWN INDICATION
     Dates: start: 20021127
  12. PANTOLOC [Concomitant]
     Indication: PRODUCT USED FOR UNKNOWN INDICATION
     Dates: start: 20021204
  13. AKINETON [Concomitant]
     Indication: PRODUCT USED FOR UNKNOWN INDICATION
     Dates: start: 20021204, end: 20021205

REACTIONS (2)
  - Cardiac arrest [Recovered/Resolved]
  - Cardiac failure [Recovered/Resolved]
